FAERS Safety Report 4622190-8 (Version None)
Quarter: 2005Q1

REPORT INFORMATION
  Report Type: 
  Country: None (occurrence: None)
  Receive Date: 20050324
  Receipt Date: 20050324
  Transmission Date: 20050727
  Serious: No
  Sender: FDA-Public Use
  Company Number: None

PATIENT
  Sex: Female
  Weight: 37.8 kg

DRUGS (1)
  1. CISPLATIN [Suspect]
     Dosage: 130 MG IV GIVEN 3/15/05 (1ST DOSE OF CHEMO)
     Route: 042
     Dates: start: 20050315

REACTIONS (6)
  - ASTHENIA [None]
  - DEHYDRATION [None]
  - FALL [None]
  - FLUID INTAKE REDUCED [None]
  - SYNCOPE [None]
  - TREATMENT NONCOMPLIANCE [None]
